FAERS Safety Report 22537231 (Version 2)
Quarter: 2023Q2

REPORT INFORMATION
  Report Type: Spontaneous
  Country: RU (occurrence: None)
  Receive Date: 20230608
  Receipt Date: 20230627
  Transmission Date: 20230721
  Serious: Yes (Life-Threatening, Hospitalization)
  Sender: FDA-Public Use
  Company Number: 2023A133208

PATIENT
  Age: 32 Year
  Sex: Female

DRUGS (7)
  1. QUETIAPINE [Suspect]
     Active Substance: QUETIAPINE
     Indication: Acute psychosis
     Dosage: 25 MG IN THE MORNING, IN THE EVENING, 50 MG AT NIGHT
     Route: 048
  2. QUETIAPINE [Suspect]
     Active Substance: QUETIAPINE
     Indication: Acute psychosis
     Dosage: 25 MG IN THE MORNING, IN THE EVENING, 100 MG AT BEDTIME.
     Route: 048
  3. QUETIAPINE [Suspect]
     Active Substance: QUETIAPINE
     Indication: Acute psychosis
     Dosage: 25 MG X 80 TABLETS ACUTE SINGLE DOSE
     Route: 048
  4. HALOPERIDOL [Concomitant]
     Active Substance: HALOPERIDOL
     Indication: Acute psychosis
     Dosage: 1 ML IM 2 TIMES A DAY FOR 3 DAYS, AND 5 MG 2 TIMES A DAY
  5. LITHIUM CARBONATE [Concomitant]
     Active Substance: LITHIUM CARBONATE
  6. PIPOFEZINE [Concomitant]
  7. TRIHEXYPHENIDYL [Concomitant]
     Active Substance: TRIHEXYPHENIDYL
     Indication: Extrapyramidal disorder

REACTIONS (3)
  - Toxicity to various agents [Unknown]
  - Overdose [Unknown]
  - Depressive symptom [Unknown]
